FAERS Safety Report 8797676 (Version 1)
Quarter: 2012Q4

REPORT INFORMATION
  Report Type: 
  Country: BD (occurrence: BD)
  Receive Date: 20120920
  Receipt Date: 20120920
  Transmission Date: 20130627
  Serious: Yes (Death, Other)
  Sender: FDA-Public Use
  Company Number: PHHY2012BD081534

PATIENT
  Age: 80 Year
  Sex: Male

DRUGS (1)
  1. ACLASTA [Suspect]
     Indication: OSTEOPOROSIS
     Dosage: Once yearly
     Route: 042
     Dates: start: 20080604

REACTIONS (3)
  - Pneumonia [Fatal]
  - Urinary tract infection [Unknown]
  - Hypokinesia [Unknown]
